FAERS Safety Report 4522658-9 (Version None)
Quarter: 2004Q4

REPORT INFORMATION
  Report Type: 
  Country: None (occurrence: None)
  Receive Date: 20041207
  Receipt Date: 20041124
  Transmission Date: 20050328
  Serious: Yes (Hospitalization)
  Sender: FDA-Public Use
  Company Number: 2004AP03488

PATIENT
  Age: 76 Year
  Sex: Male

DRUGS (10)
  1. IRESSA [Suspect]
     Indication: BRONCHIOLOALVEOLAR CARCINOMA
     Dosage: 250 MG DAILY PO
     Route: 048
     Dates: start: 20040614, end: 20040626
  2. IRESSA [Suspect]
     Indication: NON-SMALL CELL LUNG CANCER
     Dosage: 250 MG DAILY PO
     Route: 048
     Dates: start: 20040614, end: 20040626
  3. GASTER D [Concomitant]
  4. PANALDINE [Concomitant]
  5. BUFFERIN [Concomitant]
  6. HARNAL [Concomitant]
  7. AVISHOT [Concomitant]
  8. MAGNESIUM OXIDE [Concomitant]
  9. PRIMPERAN [Concomitant]
  10. LASIX [Concomitant]

REACTIONS (6)
  - CONDITION AGGRAVATED [None]
  - DISSEMINATED INTRAVASCULAR COAGULATION [None]
  - HYPOXIA [None]
  - IDIOPATHIC THROMBOCYTOPENIC PURPURA [None]
  - PLATELET COUNT DECREASED [None]
  - RESPIRATORY DISORDER [None]
